FAERS Safety Report 9820749 (Version 1)
Quarter: 2014Q1

REPORT INFORMATION
  Report Type: Spontaneous
  Country: GB (occurrence: GB)
  Receive Date: 20140116
  Receipt Date: 20140116
  Transmission Date: 20141002
  Serious: Yes (Hospitalization)
  Sender: FDA-Public Use
  Company Number: GB-VERTEX PHARMACEUTICALS INC-2014-000198

PATIENT
  Sex: Female

DRUGS (2)
  1. KALYDECO [Suspect]
     Indication: CYSTIC FIBROSIS
     Dosage: 150 MG, UNK
     Dates: start: 20130208
  2. KALYDECO [Suspect]
     Dosage: 150 MG, QD

REACTIONS (1)
  - Investigation [Unknown]
